FAERS Safety Report 12865216 (Version 1)
Quarter: 2016Q4

REPORT INFORMATION
  Report Type: Spontaneous
  Country: US (occurrence: US)
  Receive Date: 20161020
  Receipt Date: 20161020
  Transmission Date: 20170207
  Serious: Yes (Other)
  Sender: FDA-Public Use
  Company Number: None

PATIENT
  Age: 71 Year
  Sex: Female
  Weight: 61.29 kg

DRUGS (3)
  1. VITAMIN B [Concomitant]
     Active Substance: VITAMIN B
  2. AMOXICILLIN AND CLAVULANATE POTASSIUM TABLETS, USP AUROBINDO PHARMA USA [Suspect]
     Active Substance: AMOXICILLIN\CLAVULANATE POTASSIUM
     Indication: EAR INFECTION
     Dosage: 875MG/25MG 20 TABLETS 1 TABLET BY MOUTH EVERY 12 HOURS BY MOUTH
     Route: 048
     Dates: start: 20160930, end: 20161004
  3. VITAMIN C [Concomitant]
     Active Substance: ASCORBIC ACID

REACTIONS (3)
  - Proctalgia [None]
  - Drug dispensing error [None]
  - Diarrhoea [None]

NARRATIVE: CASE EVENT DATE: 20160930
